FAERS Safety Report 7526123-6 (Version None)
Quarter: 2011Q2

REPORT INFORMATION
  Report Type: 
  Country: None (occurrence: None)
  Receive Date: 20110606
  Receipt Date: 20110527
  Transmission Date: 20111010
  Serious: Yes (Disabling, Other)
  Sender: FDA-Public Use
  Company Number: US-MERCK-1008USA00571

PATIENT
  Age: 55 Year
  Sex: Female

DRUGS (4)
  1. BONIVA [Suspect]
     Indication: OSTEOPOROSIS
     Route: 048
     Dates: start: 20070401, end: 20090801
  2. FOSAMAX [Suspect]
     Indication: OSTEOPOROSIS
     Route: 048
     Dates: start: 20001101, end: 20070401
  3. FLUTICASONE [Concomitant]
     Indication: HYPERSENSITIVITY
     Route: 065
     Dates: start: 20001001
  4. BUSPIRONE HYDROCHLORIDE [Concomitant]
     Indication: ANXIETY
     Route: 065
     Dates: start: 19900101

REACTIONS (24)
  - CONVULSION [None]
  - ANAEMIA [None]
  - PEPTIC ULCER [None]
  - ORAL INFECTION [None]
  - NERVE INJURY [None]
  - NODULE [None]
  - GINGIVAL INFECTION [None]
  - EDENTULOUS [None]
  - GINGIVAL DISORDER [None]
  - TOOTH DISORDER [None]
  - INSOMNIA [None]
  - SOMNOLENCE [None]
  - CELLULITIS [None]
  - ADVERSE DRUG REACTION [None]
  - PARANASAL SINUS MUCOSAL HYPERTROPHY [None]
  - OSTEONECROSIS OF JAW [None]
  - GASTROOESOPHAGEAL REFLUX DISEASE [None]
  - TRIGEMINAL NEURALGIA [None]
  - TRISMUS [None]
  - CERVICAL SPINAL STENOSIS [None]
  - INTERVERTEBRAL DISC DEGENERATION [None]
  - DRUG HYPERSENSITIVITY [None]
  - NEPHROPATHY [None]
  - PULPITIS DENTAL [None]
